FAERS Safety Report 7942972-4 (Version None)
Quarter: 2011Q4

REPORT INFORMATION
  Report Type: 
  Country: None (occurrence: None)
  Receive Date: 20111128
  Receipt Date: 20111118
  Transmission Date: 20120403
  Serious: Yes (Hospitalization, Other)
  Sender: FDA-Public Use
  Company Number: US-SANOFI-AVENTIS-2011SA076336

PATIENT
  Age: 55 Year
  Sex: Female

DRUGS (2)
  1. LANTUS [Suspect]
     Dosage: DOSE:30 UNIT(S)
     Route: 058
     Dates: start: 20110901, end: 20111001
  2. LANTUS [Suspect]
     Dosage: DOSE:55 UNIT(S)
     Route: 058
     Dates: start: 20111001

REACTIONS (3)
  - BLOOD GLUCOSE DECREASED [None]
  - PNEUMONIA [None]
  - RASH PRURITIC [None]
